FAERS Safety Report 7504631-1 (Version None)
Quarter: 2011Q2

REPORT INFORMATION
  Report Type: 
  Country: None (occurrence: None)
  Receive Date: 20110525
  Receipt Date: 20110317
  Transmission Date: 20111010
  Serious: Yes (Other)
  Sender: FDA-Public Use
  Company Number: US-AMGEN-USASP2011015082

PATIENT
  Age: 74 Year
  Sex: Male

DRUGS (1)
  1. NPLATE [Suspect]
     Indication: OFF LABEL USE
     Dosage: 8 A?G/KG, UNK
     Dates: start: 20101005, end: 20101214

REACTIONS (1)
  - DRUG INEFFECTIVE [None]
